FAERS Safety Report 4899359-0 (Version None)
Quarter: 2006Q1

REPORT INFORMATION
  Report Type: 
  Country: None (occurrence: None)
  Receive Date: 20060202
  Receipt Date: 20050628
  Transmission Date: 20060701
  Serious: Yes (Other)
  Sender: FDA-Public Use
  Company Number: FR-NOVOPROD-244972

PATIENT
  Age: 75 Year
  Sex: Female
  Weight: 80 kg

DRUGS (5)
  1. NOVOLOG MIX 70/30 [Suspect]
     Indication: INSULIN-REQUIRING TYPE II DIABETES MELLITUS
     Dosage: 32 IU, QD
     Dates: start: 20050201, end: 20050201
  2. NOVOLOG MIX 70/30 [Suspect]
     Dosage: 32 IU, QD
     Dates: start: 20050401, end: 20050401
  3. KARDEGIC [Concomitant]
     Dosage: 75 UNK, UNK
     Route: 048
  4. LESCOL [Concomitant]
     Dosage: 1 TAB, UNK
     Route: 048
  5. VASTAREL ^BIOPHARMA^ [Concomitant]
     Dosage: 60 UNK, UNK
     Route: 048

REACTIONS (4)
  - INJECTION SITE ERYTHEMA [None]
  - PRURIGO [None]
  - PURPURA [None]
  - SKIN NECROSIS [None]
